FAERS Safety Report 14690659 (Version 1)
Quarter: 2018Q1

REPORT INFORMATION
  Report Type: Spontaneous
  Country: US (occurrence: US)
  Receive Date: 20180328
  Receipt Date: 20180328
  Transmission Date: 20180509
  Serious: Yes (Other)
  Sender: FDA-Public Use
  Company Number: US-TEVA-2018-US-874883

PATIENT
  Age: 78 Year
  Sex: Female

DRUGS (1)
  1. SIMVASTATIN. [Suspect]
     Active Substance: SIMVASTATIN
     Route: 065

REACTIONS (3)
  - Acute hepatic failure [Recovered/Resolved]
  - Autoimmune hepatitis [Recovered/Resolved]
  - Hepatitis B reactivation [Recovered/Resolved]
